FAERS Safety Report 24528891 (Version 1)
Quarter: 2024Q4

REPORT INFORMATION
  Report Type: Spontaneous
  Country: US (occurrence: US)
  Receive Date: 20241021
  Receipt Date: 20241021
  Transmission Date: 20250114
  Serious: No
  Sender: INCYTE
  Company Number: US-INCYTE CORPORATION-2024IN010812

PATIENT

DRUGS (2)
  1. JAKAFI [Suspect]
     Active Substance: RUXOLITINIB
     Indication: Bone marrow transplant
     Dosage: 10 MILLIGRAM, BID
     Route: 048
     Dates: start: 202407
  2. JAKAFI [Suspect]
     Active Substance: RUXOLITINIB
     Indication: Cytomegalovirus infection

REACTIONS (3)
  - Contusion [Unknown]
  - Melanocytic naevus [Unknown]
  - Off label use [Unknown]

NARRATIVE: CASE EVENT DATE: 20240701
